FAERS Safety Report 24727028 (Version 1)
Quarter: 2024Q4

REPORT INFORMATION
  Report Type: Report from Study
  Country: IN (occurrence: IN)
  Receive Date: 20241212
  Receipt Date: 20241212
  Transmission Date: 20250115
  Serious: Yes (Hospitalization, Other)
  Sender: CIPLA
  Company Number: IN-CIPLA LTD.-2024IN14447

PATIENT

DRUGS (4)
  1. METOPROLOL SUCCINATE [Suspect]
     Active Substance: METOPROLOL SUCCINATE
     Indication: Product used for unknown indication
     Dosage: UNK (DOSE USED 1 (UNITS UNSPECIFIED), FREQUENCY 1 (UNITS UNSPECIFIED))
     Route: 048
  2. ASPIRIN [Concomitant]
     Active Substance: ASPIRIN
     Indication: Product used for unknown indication
     Dosage: UNK
     Route: 065
  3. NIKORAN [Concomitant]
     Indication: Product used for unknown indication
     Dosage: UNK
     Route: 065
  4. OXRAMET S XR [Concomitant]
     Indication: Product used for unknown indication
     Dosage: UNK, STRENGTH 500 MILLIGRAM
     Route: 065

REACTIONS (1)
  - Oedematous kidney [Recovering/Resolving]

NARRATIVE: CASE EVENT DATE: 20241123
